FAERS Safety Report 21532486 (Version 2)
Quarter: 2022Q4

REPORT INFORMATION
  Report Type: Spontaneous
  Country: US (occurrence: US)
  Receive Date: 20221101
  Receipt Date: 20221206
  Transmission Date: 20230113
  Serious: Yes (Death, Life-Threatening)
  Sender: FDA-Public Use
  Company Number: US-Vifor (International) Inc.-VIT-2022-07436

PATIENT
  Age: 84 Year
  Sex: Female
  Weight: 63.8 kg

DRUGS (2)
  1. MIRCERA [Suspect]
     Active Substance: METHOXY POLYETHYLENE GLYCOL-EPOETIN BETA
     Indication: Nephrogenic anaemia
     Route: 040
     Dates: start: 20221021, end: 20221021
  2. VENOFER [Suspect]
     Active Substance: IRON SUCROSE
     Indication: Anaemia
     Route: 040
     Dates: start: 20221017, end: 20221021

REACTIONS (3)
  - Cardiac arrest [Fatal]
  - Unresponsive to stimuli [Fatal]
  - Agonal respiration [Fatal]

NARRATIVE: CASE EVENT DATE: 20221021
